FAERS Safety Report 8005271-0 (Version None)
Quarter: 2011Q4

REPORT INFORMATION
  Report Type: 
  Country: None (occurrence: None)
  Receive Date: 20111223
  Receipt Date: 20111222
  Transmission Date: 20120403
  Serious: Yes (Life-Threatening)
  Sender: FDA-Public Use
  Company Number: PL-B.I. PHARMACEUTICALS,INC./RIDGEFIELD-2011-AP-00741AP

PATIENT
  Age: 65 Year
  Sex: Female

DRUGS (3)
  1. PRADAXA [Suspect]
     Indication: KNEE OPERATION
     Route: 048
     Dates: start: 20101101
  2. METHOTREXATE [Concomitant]
  3. ENCORTOLON [Concomitant]

REACTIONS (1)
  - EMBOLISM VENOUS [None]
